FAERS Safety Report 14218564 (Version 2)
Quarter: 2018Q1

REPORT INFORMATION
  Report Type: Report from Study
  Country: PL (occurrence: PL)
  Receive Date: 20171123
  Receipt Date: 20180321
  Transmission Date: 20180508
  Serious: Yes (Hospitalization)
  Sender: FDA-Public Use
  Company Number: PL-ASTRAZENECA-2016SF04731

PATIENT
  Age: 80 Year
  Sex: Female
  Weight: 64 kg

DRUGS (24)
  1. FRAXIPARINE [Concomitant]
     Active Substance: NADROPARIN CALCIUM
     Indication: THROMBOSIS PROPHYLAXIS
     Dates: start: 20160927, end: 20161013
  2. AUGMENTIN [Concomitant]
     Active Substance: AMOXICILLIN\CLAVULANATE POTASSIUM
     Indication: INFLAMMATION
     Dosage: 1-2 G THREE TIMES A DAY
     Dates: start: 20160821, end: 20160830
  3. AUGMENTIN [Concomitant]
     Active Substance: AMOXICILLIN\CLAVULANATE POTASSIUM
     Indication: MYOSITIS
     Dates: start: 20160919, end: 20160927
  4. FLUCONAZOLE. [Concomitant]
     Active Substance: FLUCONAZOLE
     Indication: PROPHYLAXIS AGAINST DIARRHOEA
     Dates: start: 20160823, end: 20160831
  5. ELECTROLYTE [Concomitant]
     Active Substance: UNSPECIFIED INGREDIENT
     Indication: PROPHYLAXIS AGAINST DEHYDRATION
     Dates: start: 20160818, end: 20160830
  6. CLINDAMYCIN. [Concomitant]
     Active Substance: CLINDAMYCIN
     Indication: MYOSITIS
     Dates: start: 20160927, end: 20161013
  7. FRAXIPARINE [Concomitant]
     Active Substance: NADROPARIN CALCIUM
     Indication: THROMBOSIS PROPHYLAXIS
     Dates: start: 20160818, end: 20160831
  8. FRAXIPARINE [Concomitant]
     Active Substance: NADROPARIN CALCIUM
     Indication: THROMBOSIS PROPHYLAXIS
     Dates: start: 20160927, end: 20161013
  9. AUGMENTIN [Concomitant]
     Active Substance: AMOXICILLIN\CLAVULANATE POTASSIUM
     Indication: MYOSITIS
     Dosage: 1-2 G THREE TIMES A DAY
     Dates: start: 20160821, end: 20160830
  10. OXYCONTIN [Concomitant]
     Active Substance: OXYCODONE HYDROCHLORIDE
     Indication: CONNECTIVE TISSUE DISORDER
     Dates: start: 20160927, end: 20161011
  11. HEVIRAN [Concomitant]
     Active Substance: ACYCLOVIR
     Indication: INFECTION PROPHYLAXIS
     Dosage: 1600.0MG UNKNOWN
     Dates: start: 2012
  12. BISEPTOL [Concomitant]
     Active Substance: SULFAMETHOXAZOLE\TRIMETHOPRIM
     Indication: INFECTION PROPHYLAXIS
     Dates: start: 2012
  13. ENCORTON [Concomitant]
     Active Substance: PREDNISONE
     Indication: MYOSITIS
     Dates: start: 20160927, end: 20161013
  14. ACALABRUTINIB. [Suspect]
     Active Substance: ACALABRUTINIB
     Indication: CHRONIC LYMPHOCYTIC LEUKAEMIA
     Route: 048
     Dates: start: 20160926, end: 20160928
  15. CLINDAMYCIN. [Concomitant]
     Active Substance: CLINDAMYCIN
     Indication: MYOSITIS
     Dates: start: 20160818, end: 20160831
  16. TRAMAL [Concomitant]
     Active Substance: TRAMADOL
     Indication: PAIN
     Dates: start: 20160927, end: 20161013
  17. ACALABRUTINIB. [Suspect]
     Active Substance: ACALABRUTINIB
     Indication: CHRONIC LYMPHOCYTIC LEUKAEMIA
     Route: 048
     Dates: start: 20160615, end: 20160825
  18. AUGMENTIN [Concomitant]
     Active Substance: AMOXICILLIN\CLAVULANATE POTASSIUM
     Indication: INFLAMMATION
     Dates: start: 20160919, end: 20160927
  19. ELECTROLYTE [Concomitant]
     Active Substance: UNSPECIFIED INGREDIENT
     Indication: PROPHYLAXIS AGAINST DEHYDRATION
     Dates: start: 20160327, end: 20161013
  20. MILURIT [Concomitant]
     Active Substance: ALLOPURINOL
     Indication: HYPERURICAEMIA
     Dosage: 100.0MG UNKNOWN
     Dates: start: 2000
  21. CLINDAMYCIN. [Concomitant]
     Active Substance: CLINDAMYCIN
     Indication: INFLAMMATION
     Dates: start: 20160818, end: 20160831
  22. FRAXIPARINE [Concomitant]
     Active Substance: NADROPARIN CALCIUM
     Indication: THROMBOSIS PROPHYLAXIS
     Dates: start: 20160818, end: 20160831
  23. ELECTROLYTE [Concomitant]
     Active Substance: UNSPECIFIED INGREDIENT
     Indication: BLOOD ELECTROLYTES ABNORMAL
     Dates: start: 20160818, end: 20160830
  24. ELECTROLYTE [Concomitant]
     Active Substance: UNSPECIFIED INGREDIENT
     Indication: BLOOD ELECTROLYTES ABNORMAL
     Dates: start: 20160327, end: 20161013

REACTIONS (2)
  - Soft tissue inflammation [Recovered/Resolved]
  - Thrombocytopenia [Recovered/Resolved]

NARRATIVE: CASE EVENT DATE: 20160927
